FAERS Safety Report 8249920-0 (Version None)
Quarter: 2012Q2

REPORT INFORMATION
  Report Type: 
  Country: None (occurrence: None)
  Receive Date: 20120402
  Receipt Date: 20120320
  Transmission Date: 20120825
  Serious: Yes (Hospitalization)
  Sender: FDA-Public Use
  Company Number: DE-UCBSA-054035

PATIENT
  Age: 70 Year
  Sex: Female
  Weight: 83 kg

DRUGS (9)
  1. ARCOXIA [Concomitant]
     Indication: RHEUMATOID ARTHRITIS
     Route: 048
     Dates: start: 20091005
  2. RAMICARD [Concomitant]
     Indication: HYPERTENSION
     Route: 048
  3. METHOTREXATE SODIUM [Concomitant]
     Indication: RHEUMATOID ARTHRITIS
     Route: 058
     Dates: start: 20090713
  4. FALITHROM [Concomitant]
     Indication: THROMBOSIS
     Route: 048
     Dates: start: 20111003
  5. CERTOLIZUMAB PEGOL [Suspect]
     Indication: RHEUMATOID ARTHRITIS
     Route: 058
     Dates: start: 20101005, end: 20111219
  6. PREDNISOLONE [Concomitant]
     Indication: RHEUMATOID ARTHRITIS
     Dosage: 5-10 MG
     Route: 048
     Dates: start: 20090713
  7. AMLODIPINE [Concomitant]
     Indication: HYPERTENSION
     Route: 048
  8. METHOTREXATE SODIUM [Concomitant]
     Dosage: 50
  9. AMLODIPINE [Concomitant]
     Dosage: 5

REACTIONS (2)
  - CYSTITIS [None]
  - ARTHRITIS BACTERIAL [None]
